FAERS Safety Report 6385123-2 (Version None)
Quarter: 2009Q4

REPORT INFORMATION
  Report Type: 
  Country: None (occurrence: None)
  Receive Date: 20091002
  Receipt Date: 20090929
  Transmission Date: 20100525
  Serious: Yes (Hospitalization)
  Sender: FDA-Public Use
  Company Number: FR-BRISTOL-MYERS SQUIBB COMPANY-12981536

PATIENT
  Age: 62 Year
  Sex: Male
  Weight: 117 kg

DRUGS (2)
  1. CISPLATIN [Suspect]
     Indication: BLADDER TRANSITIONAL CELL CARCINOMA
     Dates: start: 20040706, end: 20040706
  2. GEMZAR [Suspect]
     Indication: BLADDER TRANSITIONAL CELL CARCINOMA
     Dates: start: 20040802, end: 20040802

REACTIONS (1)
  - CARDIAC FAILURE [None]
